FAERS Safety Report 6910086-8 (Version None)
Quarter: 2010Q3

REPORT INFORMATION
  Report Type: 
  Country: None (occurrence: None)
  Receive Date: 20100806
  Receipt Date: 20100728
  Transmission Date: 20110219
  Serious: Yes (Hospitalization)
  Sender: FDA-Public Use
  Company Number: DE-JNJFOC-20100708884

PATIENT
  Age: 57 Year
  Sex: Female
  Weight: 62 kg

DRUGS (3)
  1. RISPERDAL [Suspect]
     Indication: PRODUCT USED FOR UNKNOWN INDICATION
     Route: 048
  2. RISPERDAL [Suspect]
     Route: 048
  3. MICTONORM [Concomitant]
     Route: 065

REACTIONS (3)
  - NEUTROPHIL COUNT DECREASED [None]
  - SCHIZOAFFECTIVE DISORDER [None]
  - WHITE BLOOD CELL COUNT DECREASED [None]
